FAERS Safety Report 21918740 (Version 1)
Quarter: 2023Q1

REPORT INFORMATION
  Report Type: Spontaneous
  Country: US (occurrence: US)
  Receive Date: 20230127
  Receipt Date: 20230127
  Transmission Date: 20230418
  Serious: No
  Sender: FDA-Public Use
  Company Number: US-BRISTOL-MYERS SQUIBB COMPANY-2023-012531

PATIENT
  Age: 72 Year
  Sex: Female
  Weight: 85.73 kg

DRUGS (1)
  1. POMALYST [Suspect]
     Active Substance: POMALIDOMIDE
     Indication: Plasma cell myeloma
     Dosage: ONCE DAILY FOR 21 DAYS AND 7 DAYS OFF
     Route: 048

REACTIONS (5)
  - Treatment noncompliance [Unknown]
  - Alopecia [Unknown]
  - Fatigue [Unknown]
  - Dyspnoea [Unknown]
  - Memory impairment [Unknown]
